FAERS Safety Report 7248326-0 (Version None)
Quarter: 2011Q1

REPORT INFORMATION
  Report Type: 
  Country: None (occurrence: None)
  Receive Date: 20110127
  Receipt Date: 20110117
  Transmission Date: 20110831
  Serious: Yes (Death, Life-Threatening, Other)
  Sender: FDA-Public Use
  Company Number: US-CELGENEUS-163-21880-10112517

PATIENT
  Sex: Male

DRUGS (10)
  1. DEXAMETHASONE [Concomitant]
     Indication: MULTIPLE MYELOMA
     Route: 065
     Dates: start: 20100501, end: 20100501
  2. FENTANYL [Concomitant]
     Indication: PAIN
     Route: 062
     Dates: start: 20050101, end: 20100601
  3. LEXAPRO [Concomitant]
     Indication: DEPRESSION
     Route: 065
     Dates: end: 20100601
  4. COUMADIN [Concomitant]
     Dosage: 1-2MG
     Route: 065
     Dates: start: 20040101, end: 20100601
  5. DURAGESIC-50 [Concomitant]
     Route: 062
  6. PREVACID [Concomitant]
     Route: 065
  7. ULORIC [Concomitant]
     Route: 065
  8. EPOGEN [Concomitant]
     Dosage: 4000 UNITS
     Route: 065
     Dates: start: 20040101, end: 20100601
  9. REVLIMID [Suspect]
     Indication: MULTIPLE MYELOMA
     Route: 048
     Dates: start: 20100525, end: 20100528
  10. SYNTHROID [Concomitant]
     Dosage: 0.25-.125MCG
     Route: 065
     Dates: start: 20040101, end: 20100601

REACTIONS (4)
  - RENAL FAILURE CHRONIC [None]
  - SEPSIS [None]
  - TACHYARRHYTHMIA [None]
  - MULTIPLE MYELOMA [None]
